FAERS Safety Report 21439954 (Version 1)
Quarter: 2022Q4

REPORT INFORMATION
  Report Type: Spontaneous
  Country: US (occurrence: US)
  Receive Date: 20221011
  Receipt Date: 20221011
  Transmission Date: 20230113
  Serious: No
  Sender: FDA-Public Use
  Company Number: US-MORPHOSYS US-2022-MOR001850-US

PATIENT
  Age: 51 Year
  Weight: 41.723 kg

DRUGS (19)
  1. MONJUVI [Suspect]
     Active Substance: TAFASITAMAB-CXIX
     Indication: Diffuse large B-cell lymphoma
     Dosage: 580 MILLIGRAM, C1D1
     Route: 042
     Dates: start: 20211102, end: 20211102
  2. MONJUVI [Suspect]
     Active Substance: TAFASITAMAB-CXIX
     Dosage: 580 MILLIGRAM, C1D4
     Route: 042
     Dates: start: 20211105, end: 20211105
  3. MONJUVI [Suspect]
     Active Substance: TAFASITAMAB-CXIX
     Dosage: 580 MILLIGRAM, C1D8
     Route: 042
     Dates: start: 20211108, end: 20211108
  4. MONJUVI [Suspect]
     Active Substance: TAFASITAMAB-CXIX
     Dosage: 580 MILLIGRAM, C1D15
     Route: 042
     Dates: start: 20211115, end: 20211115
  5. MONJUVI [Suspect]
     Active Substance: TAFASITAMAB-CXIX
     Dosage: 580 MILLIGRAM, C1D22
     Route: 042
     Dates: start: 20211122, end: 20211122
  6. MONJUVI [Suspect]
     Active Substance: TAFASITAMAB-CXIX
     Dosage: 580 MILLIGRAM, C2D1
     Route: 042
     Dates: start: 20211130, end: 20211130
  7. MONJUVI [Suspect]
     Active Substance: TAFASITAMAB-CXIX
     Dosage: 580 MILLIGRAM, C2D8
     Route: 042
     Dates: start: 20211206, end: 20211206
  8. MONJUVI [Suspect]
     Active Substance: TAFASITAMAB-CXIX
     Dosage: 550 MILLIGRAM, C2D15
     Route: 042
     Dates: start: 20211213, end: 20211213
  9. MONJUVI [Suspect]
     Active Substance: TAFASITAMAB-CXIX
     Dosage: 550 MILLIGRAM, C2D22
     Route: 042
     Dates: start: 20211220, end: 20211220
  10. MONJUVI [Suspect]
     Active Substance: TAFASITAMAB-CXIX
     Dosage: 550 MILLIGRAM, C3D1
     Route: 042
     Dates: start: 20211230, end: 20211230
  11. MONJUVI [Suspect]
     Active Substance: TAFASITAMAB-CXIX
     Dosage: 520 MILLIGRAM, C3D8
     Route: 042
     Dates: start: 20220106, end: 20220106
  12. MONJUVI [Suspect]
     Active Substance: TAFASITAMAB-CXIX
     Dosage: 520 MILLIGRAM, C3D15
     Route: 042
     Dates: start: 20220117, end: 20220117
  13. MONJUVI [Suspect]
     Active Substance: TAFASITAMAB-CXIX
     Dosage: 520 MILLIGRAM, C3D22
     Route: 042
     Dates: start: 20220124, end: 20220124
  14. MONJUVI [Suspect]
     Active Substance: TAFASITAMAB-CXIX
     Dosage: 500 MILLIGRAM, C4D1
     Route: 042
     Dates: start: 20220131, end: 20220131
  15. REVLIMID [Suspect]
     Active Substance: LENALIDOMIDE
     Indication: Diffuse large B-cell lymphoma
     Dosage: 25 MILLIGRAM, QD, D1-21
     Route: 048
  16. ELIQUIS [Concomitant]
     Active Substance: APIXABAN
     Indication: Product used for unknown indication
     Dosage: 5 MILLIGRAM, BID
     Route: 048
  17. HYDROCODONE [Concomitant]
     Active Substance: HYDROCODONE
     Indication: Product used for unknown indication
     Dosage: 5/325 MILLIGRAM
  18. MORPHINE [Concomitant]
     Active Substance: MORPHINE
     Indication: Product used for unknown indication
     Dosage: 10 MILLIGRAM
     Route: 048
  19. POTASSIUM [Concomitant]
     Active Substance: POTASSIUM
     Indication: Product used for unknown indication
     Dosage: 20 MICROEQUIVALENT
     Route: 048

REACTIONS (1)
  - Disease progression [Unknown]
